FAERS Safety Report 10092898 (Version 1)
Quarter: 2014Q2

REPORT INFORMATION
  Report Type: Spontaneous
  Country: US (occurrence: US)
  Receive Date: 20140421
  Receipt Date: 20140421
  Transmission Date: 20141212
  Serious: No
  Sender: FDA-Public Use
  Company Number: US-SANOFI-AVENTIS-2013SA088678

PATIENT
  Age: 49 Year
  Sex: Male
  Weight: 67 kg

DRUGS (3)
  1. ALLEGRA [Suspect]
     Indication: HYPERSENSITIVITY
     Route: 048
     Dates: start: 20130827, end: 20130828
  2. DIPHENHYDRAMINE HYDROCHLORIDE [Concomitant]
  3. CLARITIN [Concomitant]

REACTIONS (3)
  - Formication [Recovered/Resolved]
  - Initial insomnia [Recovered/Resolved]
  - Pruritus [Recovered/Resolved]
